FAERS Safety Report 20497034 (Version 1)
Quarter: 2022Q1

REPORT INFORMATION
  Report Type: Spontaneous
  Country: US (occurrence: US)
  Receive Date: 20220221
  Receipt Date: 20220221
  Transmission Date: 20220423
  Serious: Yes (Other)
  Sender: FDA-Public Use
  Company Number: US-GLAXOSMITHKLINE-US2022GSK031372

PATIENT
  Sex: Female

DRUGS (6)
  1. ZANTAC [Suspect]
     Active Substance: RANITIDINE HYDROCHLORIDE
     Indication: Gastric ulcer
     Dosage: UNK UNK, QD
     Route: 065
     Dates: start: 198601, end: 201612
  2. ZANTAC [Suspect]
     Active Substance: RANITIDINE HYDROCHLORIDE
     Indication: Gastric ulcer
     Dosage: UNK UNK, QD
     Route: 065
     Dates: start: 198601, end: 201612
  3. RANITIDINE [Suspect]
     Active Substance: RANITIDINE
     Indication: Gastric ulcer
     Dosage: UNK, QD
     Route: 065
     Dates: start: 198601, end: 201612
  4. RANITIDINE [Suspect]
     Active Substance: RANITIDINE
     Indication: Gastric ulcer
     Dosage: UNK, QD
     Route: 065
     Dates: start: 198601, end: 201612
  5. RANITIDINE [Suspect]
     Active Substance: RANITIDINE
     Indication: Gastric ulcer
     Dosage: UNK, QD
     Route: 065
     Dates: start: 198601, end: 201612
  6. RANITIDINE [Suspect]
     Active Substance: RANITIDINE
     Indication: Gastric ulcer
     Dosage: UNK, QD
     Route: 065
     Dates: start: 198601, end: 201612

REACTIONS (1)
  - Breast cancer [Unknown]
